FAERS Safety Report 24742435 (Version 1)
Quarter: 2024Q4

REPORT INFORMATION
  Report Type: Spontaneous
  Country: US (occurrence: None)
  Receive Date: 20241214
  Receipt Date: 20241214
  Transmission Date: 20250115
  Serious: Yes (Other)
  Sender: Public
  Company Number: None

PATIENT
  Age: 60 Year
  Sex: Female
  Weight: 74.25 kg

DRUGS (9)
  1. GADOLINIUM [Suspect]
     Active Substance: GADOLINIUM
     Indication: Magnetic resonance imaging
  2. ESTRADIOL [Concomitant]
     Active Substance: ESTRADIOL
  3. progresterone [Concomitant]
  4. VITAMIN B COMPLEX [Concomitant]
     Active Substance: CYANOCOBALAMIN\DEXPANTHENOL\NIACINAMIDE\PYRIDOXINE HYDROCHLORIDE\RIBOFLAVIN 5^-PHOSPHATE SODIUM\THIA
  5. VITAMIN C [Concomitant]
     Active Substance: ASCORBIC ACID
  6. COENZYME Q10 [Concomitant]
     Active Substance: DIETARY SUPPLEMENT\UBIDECARENONE
  7. VITAMIN D [Concomitant]
     Active Substance: VITAMIN D NOS
  8. L Theonine [Concomitant]
  9. MAGNESIUM [Concomitant]
     Active Substance: MAGNESIUM

REACTIONS (10)
  - Contrast media toxicity [None]
  - Dyspnoea [None]
  - Asthenia [None]
  - Brain fog [None]
  - Disturbance in attention [None]
  - Disturbance in attention [None]
  - Dizziness [None]
  - Nausea [None]
  - Sleep disorder [None]
  - Anxiety [None]

NARRATIVE: CASE EVENT DATE: 20241212
